FAERS Safety Report 8255155-8 (Version None)
Quarter: 2012Q2

REPORT INFORMATION
  Report Type: 
  Country: None (occurrence: None)
  Receive Date: 20120403
  Receipt Date: 20120328
  Transmission Date: 20120825
  Serious: Yes (Death, Hospitalization, Other)
  Sender: FDA-Public Use
  Company Number: US-CELGENEUS-163-21880-11063469

PATIENT
  Sex: Male
  Weight: 64.014 kg

DRUGS (23)
  1. DEXAMETHASONE [Concomitant]
     Indication: MULTIPLE MYELOMA
     Dosage: 40 MILLIGRAM
     Route: 048
     Dates: start: 20090609
  2. REVLIMID [Suspect]
     Dosage: 10 MILLIGRAM
     Route: 048
     Dates: start: 20110712
  3. BORTEZOMIB [Concomitant]
     Indication: MULTIPLE MYELOMA
     Route: 065
     Dates: start: 20110623
  4. COUMADIN [Concomitant]
     Indication: PROPHYLAXIS
     Dosage: 1 MILLIGRAM
     Route: 048
     Dates: start: 20101202
  5. VELCADE [Concomitant]
     Dosage: 2.2 MILLIGRAM
     Route: 041
     Dates: start: 20110914
  6. REVLIMID [Suspect]
     Dosage: 10MG-5MG
     Route: 048
     Dates: start: 20100401
  7. METOPROLOL SUCCINATE [Concomitant]
     Dosage: 25 MILLIGRAM
     Route: 048
  8. VELCADE [Concomitant]
     Dosage: 1.7 MILLIGRAM
     Route: 041
     Dates: start: 20111001
  9. REVLIMID [Suspect]
     Dosage: 15 MILLIGRAM
     Route: 048
     Dates: start: 20100117, end: 20100101
  10. AVODART [Concomitant]
     Dosage: .5 MILLIGRAM
     Route: 048
  11. VELCADE [Concomitant]
     Indication: MULTIPLE MYELOMA
     Route: 041
     Dates: start: 20110623
  12. SULFAMETHOXAZOLE AND TRIMETHOPRIM [Concomitant]
     Dosage: 800/160MG
     Route: 048
  13. REVLIMID [Suspect]
     Dosage: 10 MILLIGRAM
     Route: 048
     Dates: start: 20110301, end: 20110517
  14. VITAMIN D [Concomitant]
     Dosage: 1000 UNIT
     Route: 048
  15. REVLIMID [Suspect]
     Dosage: 15 MILLIGRAM
     Route: 048
     Dates: start: 20110501, end: 20110601
  16. COUMADIN [Concomitant]
     Dosage: .5 MILLIGRAM
     Route: 048
  17. DEXAMETHASONE [Concomitant]
     Dosage: 40 MILLIGRAM
     Route: 048
     Dates: start: 20111006
  18. ALLOPURINOL [Concomitant]
     Dosage: 100 MILLIGRAM
     Route: 048
  19. STARLIX [Concomitant]
     Dosage: 120 MILLIGRAM
     Route: 048
  20. SULFAMETIX [Concomitant]
     Dosage: 800/160MG
     Route: 065
  21. TOPROL-XL [Concomitant]
     Dosage: 25 MILLIGRAM
     Route: 048
  22. DIOVAN [Concomitant]
     Dosage: 160 MILLIGRAM
     Route: 048
  23. ZOMETA [Concomitant]
     Route: 065
     Dates: start: 20111027

REACTIONS (9)
  - ATRIOVENTRICULAR BLOCK [None]
  - PULMONARY EMBOLISM [None]
  - NEUROPATHY PERIPHERAL [None]
  - MULTIPLE MYELOMA [None]
  - COMPRESSION FRACTURE [None]
  - THROMBOCYTOPENIA [None]
  - LOSS OF CONSCIOUSNESS [None]
  - HAEMOGLOBIN DECREASED [None]
  - PNEUMONIA [None]
